FAERS Safety Report 11277077 (Version 2)
Quarter: 2015Q3

REPORT INFORMATION
  Report Type: Spontaneous
  Country: US (occurrence: US)
  Receive Date: 20150716
  Receipt Date: 20150817
  Transmission Date: 20151125
  Serious: Yes (Other)
  Sender: FDA-Public Use
  Company Number: US-UCBSA-2015022917

PATIENT
  Age: 23 Year
  Sex: Female
  Weight: 64.4 kg

DRUGS (17)
  1. VIMPAT [Suspect]
     Active Substance: LACOSAMIDE
     Indication: SEIZURE
     Dosage: UNK
     Dates: start: 201304
  2. VIMPAT [Suspect]
     Active Substance: LACOSAMIDE
     Dosage: 100  MG MORNING, 100 MG AFTERNOON AND 200 MG AT NIGHT
     Dates: end: 2014
  3. METOPROLOL SUCCINATE. [Concomitant]
     Active Substance: METOPROLOL SUCCINATE
     Indication: PALPITATIONS
     Dosage: 25 MG DAILY AS NEEDED
     Route: 048
  4. VIMPAT [Suspect]
     Active Substance: LACOSAMIDE
     Dosage: 200 MG, 2X/DAY (BID)
     Dates: start: 201411
  5. VIMPAT [Suspect]
     Active Substance: LACOSAMIDE
     Dosage: 100 MG, 2X/DAY (BID)
     Dates: start: 201505, end: 201505
  6. ZONISAMIDE. [Concomitant]
     Active Substance: ZONISAMIDE
     Dosage: 100 MG, WEEKLY (QW)
     Dates: start: 2015
  7. VIMPAT [Suspect]
     Active Substance: LACOSAMIDE
     Dosage: 100 MG, 3X/DAY (TID)
     Dates: start: 20150430, end: 201505
  8. FOLIC ACID. [Concomitant]
     Active Substance: FOLIC ACID
     Indication: PROPHYLAXIS
     Dosage: 1 MG DAILY
     Route: 048
  9. NORETHINDRONE. [Concomitant]
     Active Substance: NORETHINDRONE
     Indication: PRODUCT USED FOR UNKNOWN INDICATION
     Dosage: 0.35 MG DAILY
     Route: 048
  10. FLUDROCORTISONE [Concomitant]
     Active Substance: FLUDROCORTISONE
     Indication: BLOOD SODIUM DECREASED
     Dosage: 0.1 MG DAILY
     Route: 048
  11. POTASSIUM [Concomitant]
     Active Substance: POTASSIUM
     Indication: SUPPLEMENTATION THERAPY
     Dosage: UNK
  12. EXCEDRIN [Concomitant]
     Active Substance: ACETAMINOPHEN\ASPIRIN\CAFFEINE
     Indication: HEADACHE
     Dosage: UNK
     Dates: start: 2015
  13. VIMPAT [Suspect]
     Active Substance: LACOSAMIDE
     Dosage: DECREASED TO 300 MG
     Dates: start: 201410, end: 2014
  14. VIMPAT [Suspect]
     Active Substance: LACOSAMIDE
     Dosage: 100 MG, ONCE DAILY (QD)
     Dates: start: 201505, end: 20150514
  15. ZONISAMIDE. [Concomitant]
     Active Substance: ZONISAMIDE
     Indication: SEIZURE
     Dosage: 100 MG AND 200 MG AT NIGHT
     Route: 048
     Dates: start: 201505, end: 2015
  16. FLUDROCORTISONE [Concomitant]
     Active Substance: FLUDROCORTISONE
     Indication: HYPOTENSION
  17. FOLIC ACID. [Concomitant]
     Active Substance: FOLIC ACID
     Indication: SUPPLEMENTATION THERAPY

REACTIONS (11)
  - Obsessive-compulsive disorder [Not Recovered/Not Resolved]
  - Anger [Recovering/Resolving]
  - Photophobia [Recovering/Resolving]
  - Weight decreased [Recovering/Resolving]
  - Nausea [Recovering/Resolving]
  - Panic attack [Recovering/Resolving]
  - Abdominal discomfort [Recovering/Resolving]
  - Headache [Not Recovered/Not Resolved]
  - Withdrawal syndrome [Not Recovered/Not Resolved]
  - Seizure [Recovering/Resolving]
  - Dizziness [Recovering/Resolving]

NARRATIVE: CASE EVENT DATE: 201304
